FAERS Safety Report 9924052 (Version 2)
Quarter: 2014Q1

REPORT INFORMATION
  Report Type: Report from Study
  Country: FR (occurrence: FR)
  Receive Date: 20140225
  Receipt Date: 20140225
  Transmission Date: 20141002
  Serious: Yes (Hospitalization, Other)
  Sender: FDA-Public Use
  Company Number: FR-ROCHE-1164688

PATIENT
  Age: 69 Year
  Sex: Female

DRUGS (25)
  1. RITUXIMAB [Suspect]
     Indication: RHEUMATOID ARTHRITIS
     Dosage: DAY 1
     Route: 065
     Dates: start: 20090326
  2. RITUXIMAB [Suspect]
     Dosage: DAY 15
     Route: 065
     Dates: start: 20090409
  3. RITUXIMAB [Suspect]
     Dosage: DAY 1
     Route: 065
     Dates: start: 20100607
  4. RITUXIMAB [Suspect]
     Dosage: DAY 15
     Route: 065
     Dates: start: 20100623
  5. RITUXIMAB [Suspect]
     Dosage: DAY 1
     Route: 065
     Dates: start: 20110104
  6. RITUXIMAB [Suspect]
     Dosage: DAY 1
     Route: 065
     Dates: start: 20110118
  7. RITUXIMAB [Suspect]
     Dosage: DAY 1
     Route: 065
     Dates: start: 20120228
  8. RITUXIMAB [Suspect]
     Dosage: DAY 1
     Route: 065
     Dates: start: 20120313
  9. RITUXIMAB [Suspect]
     Dosage: DAY 1
     Route: 065
     Dates: start: 20121008
  10. RITUXIMAB [Suspect]
     Dosage: DAY 1
     Route: 065
     Dates: start: 20121022
  11. RITUXIMAB [Suspect]
     Dosage: DAY 1
     Route: 065
     Dates: start: 20130415
  12. RITUXIMAB [Suspect]
     Dosage: DAY 1
     Route: 065
     Dates: start: 20130429
  13. CORTANCYL [Concomitant]
     Route: 065
     Dates: start: 20090326
  14. CORTANCYL [Concomitant]
     Route: 065
     Dates: start: 20090326
  15. CORTANCYL [Concomitant]
     Route: 065
     Dates: start: 20090409
  16. CORTANCYL [Concomitant]
     Route: 065
     Dates: start: 20100607
  17. CORTANCYL [Concomitant]
     Route: 065
     Dates: start: 20100623
  18. CORTANCYL [Concomitant]
     Route: 065
     Dates: start: 20110114
  19. CORTANCYL [Concomitant]
     Route: 065
     Dates: start: 20110118
  20. CORTANCYL [Concomitant]
     Route: 065
     Dates: start: 20120228
  21. CORTANCYL [Concomitant]
     Route: 065
     Dates: start: 20120313
  22. CORTANCYL [Concomitant]
     Route: 065
     Dates: start: 20121008
  23. CORTANCYL [Concomitant]
     Route: 065
     Dates: start: 20121022
  24. CORTANCYL [Concomitant]
     Route: 065
     Dates: start: 20130415
  25. CORTANCYL [Concomitant]
     Route: 065
     Dates: start: 20130429

REACTIONS (15)
  - Back pain [Unknown]
  - Pyelonephritis acute [Recovered/Resolved]
  - Hypertension [Unknown]
  - Helicobacter infection [Recovered/Resolved]
  - Polyp [Recovered/Resolved]
  - Infection [Unknown]
  - Infusion related reaction [Recovered/Resolved]
  - Diarrhoea [Recovered/Resolved]
  - Back pain [Unknown]
  - Urinary tract infection [Recovered/Resolved]
  - Dyspnoea [Recovered/Resolved]
  - Bronchitis [Recovered/Resolved]
  - Abdominal pain [Recovered/Resolved]
  - Abdominal pain upper [Recovered/Resolved]
  - Rectal haemorrhage [Recovered/Resolved]
